FAERS Safety Report 5518031-7 (Version None)
Quarter: 2007Q4

REPORT INFORMATION
  Report Type: 
  Country: None (occurrence: None)
  Receive Date: 20071113
  Receipt Date: 20071113
  Transmission Date: 20080405
  Serious: Yes (Death)
  Sender: FDA-Public Use
  Company Number: None

PATIENT
  Sex: Male
  Weight: 72.5755 kg

DRUGS (1)
  1. GADOLINIUM [Suspect]
     Indication: COMA
     Dates: start: 20060228, end: 20060324

REACTIONS (2)
  - NEPHROGENIC SYSTEMIC FIBROSIS [None]
  - PARALYSIS [None]
